FAERS Safety Report 21165468 (Version 1)
Quarter: 2022Q3

REPORT INFORMATION
  Report Type: Spontaneous
  Country: US (occurrence: US)
  Receive Date: 20220803
  Receipt Date: 20220803
  Transmission Date: 20221026
  Serious: Yes (Other)
  Sender: FDA-Public Use
  Company Number: US-MYLANLABS-2022M1082875

PATIENT
  Age: 25 Year
  Sex: Female

DRUGS (2)
  1. PRAZOSIN [Suspect]
     Active Substance: PRAZOSIN
     Indication: Nightmare
     Dosage: 1 MILLIGRAM, QD
     Route: 065
  2. PRAZOSIN [Suspect]
     Active Substance: PRAZOSIN
     Dosage: 2 MILLIGRAM, QD
     Route: 065

REACTIONS (2)
  - Syncope [Recovered/Resolved]
  - Off label use [Unknown]
